FAERS Safety Report 8862755 (Version 1)
Quarter: 2012Q4

REPORT INFORMATION
  Report Type: 
  Country: US (occurrence: US)
  Receive Date: 20121026
  Receipt Date: 20121026
  Transmission Date: 20130627
  Serious: No
  Sender: FDA-Public Use
  Company Number: US-ALLERGAN-1209558US

PATIENT
  Age: 82 Year
  Sex: Female

DRUGS (2)
  1. ALPHAGAN P [Suspect]
     Indication: LOW TENSION GLAUCOMA
     Dosage: 2 Gtt, bid
     Route: 047
     Dates: start: 20120709
  2. LATANOPROST [Concomitant]
     Indication: LOW TENSION GLAUCOMA
     Dosage: 2 Gtt, UNK
     Route: 047

REACTIONS (3)
  - Inappropriate schedule of drug administration [Unknown]
  - Tongue dry [Recovered/Resolved]
  - Dry mouth [Recovered/Resolved]
